FAERS Safety Report 18199301 (Version 2)
Quarter: 2021Q2

REPORT INFORMATION
  Report Type: Report from Study
  Country: US (occurrence: US)
  Receive Date: 20200826
  Receipt Date: 20210522
  Transmission Date: 20210717
  Serious: Yes (Hospitalization, Other)
  Sender: FDA-Public Use
  Company Number: NVSC2020US235643

PATIENT
  Sex: Female

DRUGS (1)
  1. ENTRESTO [Suspect]
     Active Substance: SACUBITRIL\VALSARTAN
     Indication: PRODUCT USED FOR UNKNOWN INDICATION
     Dosage: UNK
     Route: 065

REACTIONS (10)
  - Gait disturbance [Unknown]
  - Blindness [Unknown]
  - Dyspnoea [Unknown]
  - Burning sensation [Unknown]
  - Hypertension [Unknown]
  - Pericardial effusion [Unknown]
  - Agitation [Unknown]
  - Cardiac failure [Unknown]
  - Myocardial infarction [Unknown]
  - Muscle spasms [Unknown]
